FAERS Safety Report 5352162-X (Version None)
Quarter: 2007Q2

REPORT INFORMATION
  Report Type: 
  Country: None (occurrence: None)
  Receive Date: 20070607
  Receipt Date: 20070529
  Transmission Date: 20071010
  Serious: Yes (Other)
  Sender: FDA-Public Use
  Company Number: 2007322650

PATIENT
  Age: 13 Year
  Sex: Male
  Weight: 53.5244 kg

DRUGS (1)
  1. VISINE A (PHENIRAMINE MALEATE, NAPHOZOLONE HYDROCHLORIDE) [Suspect]
     Dosage: OPHTHALMIC
     Dates: start: 20070522, end: 20070522

REACTIONS (2)
  - BLINDNESS UNILATERAL [None]
  - MYDRIASIS [None]
